FAERS Safety Report 13407196 (Version 4)
Quarter: 2017Q3

REPORT INFORMATION
  Report Type: Report from Study
  Country: US (occurrence: US)
  Receive Date: 20170405
  Receipt Date: 20170927
  Transmission Date: 20171127
  Serious: Yes (Hospitalization)
  Sender: FDA-Public Use
  Company Number: US-ACTELION-A-US2015-116765

PATIENT
  Age: 63 Year
  Sex: Female
  Weight: 95.24 kg

DRUGS (9)
  1. OPSUMIT [Suspect]
     Active Substance: MACITENTAN
     Indication: PULMONARY ARTERIAL HYPERTENSION
     Dosage: 10 MG, QD
     Route: 048
     Dates: start: 20150410
  2. OPSUMIT [Suspect]
     Active Substance: MACITENTAN
     Dosage: 10 MG, QD
     Route: 048
     Dates: start: 20150410
  3. TREPROSTINIL DIOLAMIN [Suspect]
     Active Substance: TREPROSTINIL DIOLAMINE
     Indication: PRODUCT USED FOR UNKNOWN INDICATION
     Dosage: 2.5 MG, TID
     Route: 048
     Dates: end: 201601
  4. TYVASO [Concomitant]
     Active Substance: TREPROSTINIL
  5. COUMADIN [Concomitant]
     Active Substance: WARFARIN SODIUM
  6. TREPROSTINIL DIOLAMIN [Suspect]
     Active Substance: TREPROSTINIL DIOLAMINE
     Dosage: 0.25 MG, TID
     Route: 048
     Dates: start: 201601
  7. REVATIO [Concomitant]
     Active Substance: SILDENAFIL CITRATE
  8. RIOCIGUAT [Concomitant]
     Active Substance: RIOCIGUAT
     Dosage: UNK
     Dates: end: 20160214
  9. ADVAIR HFA [Concomitant]
     Active Substance: FLUTICASONE PROPIONATE\SALMETEROL XINAFOATE
     Dosage: 1 D, Q12HRS

REACTIONS (22)
  - Dehydration [Unknown]
  - Cough [Unknown]
  - Diarrhoea [Unknown]
  - Gait disturbance [Unknown]
  - Visual impairment [Unknown]
  - Nervousness [Unknown]
  - Irritability [Unknown]
  - Pain [Unknown]
  - Swelling [Unknown]
  - Palpitations [Recovering/Resolving]
  - Fluid retention [Unknown]
  - Influenza [Unknown]
  - Headache [Unknown]
  - Chest pain [Recovering/Resolving]
  - Insomnia [Recovered/Resolved]
  - Arthralgia [Unknown]
  - Dyspnoea [Recovering/Resolving]
  - Dyspnoea exertional [Unknown]
  - Transfusion [Unknown]
  - Asthenia [Unknown]
  - Abdominal pain upper [Recovered/Resolved]
  - Syncope [Unknown]
